FAERS Safety Report 4535527-5 (Version None)
Quarter: 2004Q4

REPORT INFORMATION
  Report Type: 
  Country: None (occurrence: None)
  Receive Date: 20041222
  Receipt Date: 20041216
  Transmission Date: 20050328
  Serious: Yes (Hospitalization)
  Sender: FDA-Public Use
  Company Number: NO-MERCK-0412NOR00029

PATIENT
  Age: 63 Year
  Sex: Female

DRUGS (5)
  1. SINGULAIR [Suspect]
     Indication: ASTHMA
     Route: 048
     Dates: start: 20000301, end: 20001001
  2. BECLOMETHASONE DIPROPIONATE [Concomitant]
     Indication: ASTHMA
     Route: 055
  3. FLUTICASONE PROPIONATE [Concomitant]
     Indication: ASTHMA
     Route: 055
  4. BUDESONIDE [Concomitant]
     Indication: ASTHMA
     Route: 055
  5. TERBUTALINE SULFATE [Concomitant]
     Indication: ASTHMA
     Route: 055

REACTIONS (1)
  - ALLERGIC GRANULOMATOUS ANGIITIS [None]
